FAERS Safety Report 8462007-7 (Version None)
Quarter: 2012Q2

REPORT INFORMATION
  Report Type: 
  Country: None (occurrence: None)
  Receive Date: 20120625
  Receipt Date: 20120615
  Transmission Date: 20120825
  Serious: Yes (Other)
  Sender: FDA-Public Use
  Company Number: CA-JNJFOC-20120609672

PATIENT
  Sex: Male
  Weight: 76.9 kg

DRUGS (1)
  1. REMICADE [Suspect]
     Indication: COLITIS ULCERATIVE
     Route: 042
     Dates: start: 20090201

REACTIONS (5)
  - INSOMNIA [None]
  - FATIGUE [None]
  - WEIGHT DECREASED [None]
  - ASTHENIA [None]
  - ARTHRALGIA [None]
